FAERS Safety Report 6413307-3 (Version None)
Quarter: 2009Q4

REPORT INFORMATION
  Report Type: 
  Country: None (occurrence: None)
  Receive Date: 20091026
  Receipt Date: 20091015
  Transmission Date: 20100525
  Serious: Yes (Disabling)
  Sender: FDA-Public Use
  Company Number: FI-JNJFOC-20090902995

PATIENT
  Age: 54 Year
  Sex: Female

DRUGS (6)
  1. REMICADE [Suspect]
     Indication: RHEUMATOID ARTHRITIS
     Route: 042
     Dates: start: 20080410, end: 20090528
  2. METHOTREXATE [Concomitant]
     Indication: RHEUMATOID ARTHRITIS
     Route: 058
  3. FOLIC ACID [Concomitant]
     Indication: RHEUMATOID ARTHRITIS
  4. PREDNISONE [Concomitant]
     Indication: RHEUMATOID ARTHRITIS
  5. IDEOS [Concomitant]
     Indication: RHEUMATOID ARTHRITIS
  6. THYROXIN [Concomitant]
     Indication: RHEUMATOID ARTHRITIS

REACTIONS (3)
  - COGNITIVE DISORDER [None]
  - LEARNING DISORDER [None]
  - MEMORY IMPAIRMENT [None]
